FAERS Safety Report 7981411-4 (Version None)
Quarter: 2011Q4

REPORT INFORMATION
  Report Type: 
  Country: None (occurrence: None)
  Receive Date: 20111212
  Receipt Date: 20111001
  Transmission Date: 20120403
  Serious: Yes (Other)
  Sender: FDA-Public Use
  Company Number: AUR-APL-2011-06080

PATIENT
  Age: 79 Year
  Sex: Female

DRUGS (6)
  1. CRATAEGUS LAEVIGATA (CRATAEGUS LAEVIGATA) [Concomitant]
  2. MAGNESIUM VERLA  (MAGNESIUM VERLA /00648601/) [Concomitant]
  3. RAMIPRIL [Suspect]
     Indication: PRODUCT USED FOR UNKNOWN INDICATION
     Dosage: 5 MG (2.5 MG, 2 IN 1 D),ORAL
     Route: 048
     Dates: start: 20090101
  4. MARCUMAR [Suspect]
     Indication: PRODUCT USED FOR UNKNOWN INDICATION
     Dosage: 3 MG (3 MG, 1 IN 1 D)
  5. SALMON OIL (LIPITAC) [Concomitant]
  6. FUROSEMIDE [Concomitant]

REACTIONS (4)
  - FATIGUE [None]
  - PARALYSIS [None]
  - ALOPECIA [None]
  - HYPOAESTHESIA [None]
